FAERS Safety Report 11061105 (Version 36)
Quarter: 2017Q2

REPORT INFORMATION
  Report Type: Spontaneous
  Country: CA (occurrence: CA)
  Receive Date: 20150424
  Receipt Date: 20170609
  Transmission Date: 20170829
  Serious: Yes (Hospitalization, Other)
  Sender: FDA-Public Use
  Company Number: CA-ROCHE-1568249

PATIENT
  Age: 60 Year
  Sex: Female
  Weight: 81 kg

DRUGS (25)
  1. XOLAIR [Suspect]
     Active Substance: OMALIZUMAB
     Route: 058
     Dates: start: 20160912
  2. XOLAIR [Suspect]
     Active Substance: OMALIZUMAB
     Route: 058
     Dates: start: 20170109
  3. XOLAIR [Suspect]
     Active Substance: OMALIZUMAB
     Indication: ASTHMA
     Route: 058
     Dates: start: 20140219
  4. XOLAIR [Suspect]
     Active Substance: OMALIZUMAB
     Route: 058
     Dates: start: 20140513
  5. XOLAIR [Suspect]
     Active Substance: OMALIZUMAB
     Route: 058
     Dates: start: 20150106
  6. XOLAIR [Suspect]
     Active Substance: OMALIZUMAB
     Route: 058
     Dates: start: 20140805
  7. XOLAIR [Suspect]
     Active Substance: OMALIZUMAB
     Route: 058
     Dates: start: 20160412
  8. XOLAIR [Suspect]
     Active Substance: OMALIZUMAB
     Route: 058
     Dates: start: 20160531
  9. XOLAIR [Suspect]
     Active Substance: OMALIZUMAB
     Route: 058
     Dates: start: 20160726
  10. XOLAIR [Suspect]
     Active Substance: OMALIZUMAB
     Route: 058
     Dates: start: 20161011
  11. XOLAIR [Suspect]
     Active Substance: OMALIZUMAB
     Route: 058
     Dates: start: 20161121
  12. XOLAIR [Suspect]
     Active Substance: OMALIZUMAB
     Route: 058
     Dates: start: 20170605
  13. METFORMIN [Suspect]
     Active Substance: METFORMIN HYDROCHLORIDE
     Indication: DIABETES MELLITUS
     Route: 065
  14. ADVAIR HFA [Concomitant]
     Active Substance: FLUTICASONE PROPIONATE\SALMETEROL XINAFOATE
     Indication: ASTHMA
     Route: 055
  15. AVELOX [Concomitant]
     Active Substance: MOXIFLOXACIN HYDROCHLORIDE
     Indication: PRODUCT USED FOR UNKNOWN INDICATION
     Dosage: 10 DAYS
     Route: 065
  16. XOLAIR [Suspect]
     Active Substance: OMALIZUMAB
     Route: 058
     Dates: start: 20141223
  17. XOLAIR [Suspect]
     Active Substance: OMALIZUMAB
     Route: 058
     Dates: start: 20150818
  18. XOLAIR [Suspect]
     Active Substance: OMALIZUMAB
     Route: 058
     Dates: start: 20150929
  19. XOLAIR [Suspect]
     Active Substance: OMALIZUMAB
     Route: 058
     Dates: start: 20160517
  20. XOLAIR [Suspect]
     Active Substance: OMALIZUMAB
     Route: 058
     Dates: start: 20140401
  21. XOLAIR [Suspect]
     Active Substance: OMALIZUMAB
     Route: 058
     Dates: start: 20161219
  22. XOLAIR [Suspect]
     Active Substance: OMALIZUMAB
     Route: 058
     Dates: start: 20150429
  23. XOLAIR [Suspect]
     Active Substance: OMALIZUMAB
     Route: 058
     Dates: start: 20160315
  24. XOLAIR [Suspect]
     Active Substance: OMALIZUMAB
     Route: 058
     Dates: start: 20160427
  25. XOLAIR [Suspect]
     Active Substance: OMALIZUMAB
     Route: 058
     Dates: start: 20170524

REACTIONS (40)
  - Diarrhoea [Unknown]
  - Blood potassium decreased [Unknown]
  - Drug ineffective [Unknown]
  - Viral upper respiratory tract infection [Unknown]
  - Vomiting [Unknown]
  - Influenza [Unknown]
  - Fall [Unknown]
  - Arthritis [Unknown]
  - Contusion [Recovered/Resolved]
  - Nausea [Unknown]
  - Rash generalised [Unknown]
  - Sputum discoloured [Recovering/Resolving]
  - Lower respiratory tract infection [Not Recovered/Not Resolved]
  - Forced expiratory volume decreased [Unknown]
  - Diabetes mellitus [Unknown]
  - Heart rate increased [Recovering/Resolving]
  - Spinal disorder [Unknown]
  - Weight decreased [Unknown]
  - Pneumonia [Unknown]
  - Cough [Recovering/Resolving]
  - Productive cough [Unknown]
  - Joint injury [Unknown]
  - Urticaria [Unknown]
  - Chest discomfort [Recovering/Resolving]
  - Viral infection [Unknown]
  - Arthralgia [Unknown]
  - Lower respiratory tract congestion [Unknown]
  - Back pain [Unknown]
  - Wheezing [Unknown]
  - Rash pruritic [Recovering/Resolving]
  - Increased viscosity of bronchial secretion [Unknown]
  - Asthma [Recovering/Resolving]
  - Oxygen saturation decreased [Unknown]
  - Malaise [Unknown]
  - Dyspnoea [Recovering/Resolving]
  - Middle insomnia [Unknown]
  - Pruritus [Unknown]
  - Respiratory disorder [Not Recovered/Not Resolved]
  - Haemorrhage [Unknown]
  - Oropharyngeal pain [Unknown]

NARRATIVE: CASE EVENT DATE: 20140327
